FAERS Safety Report 8404040 (Version 3)
Quarter: 2014Q1

REPORT INFORMATION
  Report Type: Spontaneous
  Country: US (occurrence: None)
  Receive Date: 20111227
  Receipt Date: 20130107
  Transmission Date: 20141002
  Serious: Yes (Other)
  Sender: FDA-Public Use
  Company Number: PHEH2011US03211

PATIENT
  Age: 41 Year
  Sex: Male
  Weight: 63.5 kg

DRUGS (4)
  1. GILENYA [Suspect]
     Indication: MULTIPLE SCLEROSIS
     Route: 048
     Dates: start: 20110830, end: 20120628
  2. BACLOFEN (BACLOFEN) [Concomitant]
  3. SERTRALINE (SERTRALINE) [Concomitant]
  4. DIAZEPAM (DIAZEPAM) [Concomitant]

REACTIONS (4)
  - Heart rate decreased [None]
  - Visual impairment [None]
  - Visual acuity reduced [None]
  - Vision blurred [None]
